FAERS Safety Report 5120251-0 (Version None)
Quarter: 2006Q4

REPORT INFORMATION
  Report Type: 
  Country: None (occurrence: None)
  Receive Date: 20061002
  Receipt Date: 20061002
  Transmission Date: 20070319
  Serious: Yes (Hospitalization, Other)
  Sender: FDA-Public Use
  Company Number: None

PATIENT
  Sex: Female
  Weight: 80.7403 kg

DRUGS (2)
  1. SCOPOLAMINE   TRANSDERMAL PATCH [Suspect]
     Indication: ANAESTHESIA
     Dosage: 1 PATCH- 3DAYS TRANSDERMAL
     Route: 062
     Dates: start: 20060814, end: 20060817
  2. SCOPOLAMINE   TRANSDERMAL PATCH [Suspect]
     Indication: KNEE ARTHROPLASTY
     Dosage: 1 PATCH- 3DAYS TRANSDERMAL
     Route: 062
     Dates: start: 20060814, end: 20060817

REACTIONS (3)
  - AGITATION [None]
  - DISORIENTATION [None]
  - HALLUCINATION [None]
